FAERS Safety Report 26170744 (Version 1)
Quarter: 2025Q4

REPORT INFORMATION
  Report Type: Spontaneous
  Country: US (occurrence: US)
  Receive Date: 20251217
  Receipt Date: 20251217
  Transmission Date: 20260118
  Serious: No
  Sender: ALVOGEN
  Company Number: US-ALVOGEN-2025097921

PATIENT
  Age: 64 Year
  Sex: Female

DRUGS (1)
  1. FENTANYL [Suspect]
     Active Substance: FENTANYL
     Indication: Rheumatoid arthritis
     Dosage: EXPIRATION DATE: AUG-2027 ?STRENGTH: 25 MCG/HR
     Route: 062
     Dates: start: 202504

REACTIONS (4)
  - Device malfunction [Unknown]
  - Device adhesion issue [Unknown]
  - Product use in unapproved indication [Unknown]
  - No adverse event [Unknown]
